FAERS Safety Report 9949227 (Version 1)
Quarter: 2014Q1

REPORT INFORMATION
  Report Type: Report from Study
  Country: US (occurrence: US)
  Receive Date: 20140304
  Receipt Date: 20140304
  Transmission Date: 20141002
  Serious: Yes (Other)
  Sender: FDA-Public Use
  Company Number: US-ROCHE-1345015

PATIENT
  Sex: Female

DRUGS (12)
  1. LUCENTIS [Suspect]
     Indication: RETINAL OEDEMA
     Route: 050
     Dates: start: 20110428
  2. AVASTIN [Suspect]
     Indication: PRODUCT USED FOR UNKNOWN INDICATION
     Route: 065
     Dates: start: 20100121
  3. ENALAPRIL MALEATE [Concomitant]
     Route: 065
  4. VASOTEC [Concomitant]
     Route: 065
  5. GABAPENTIN [Concomitant]
     Route: 065
  6. NEURONTIN (UNITED STATES) [Concomitant]
     Route: 065
  7. GLIPIZIDE [Concomitant]
     Route: 065
  8. LANTUS [Concomitant]
     Dosage: 100UNIT/ ML
     Route: 065
  9. GLUCOPHAGE [Concomitant]
     Route: 065
  10. SIMVASTATIN [Concomitant]
     Route: 065
  11. ZOCOR [Concomitant]
     Route: 065
  12. METFORMIN [Concomitant]
     Route: 065

REACTIONS (11)
  - Iridocyclitis [Unknown]
  - Macular oedema [Unknown]
  - Vision blurred [Unknown]
  - Cataract nuclear [Unknown]
  - Chorioretinal atrophy [Unknown]
  - Vitreous detachment [Unknown]
  - Scar [Unknown]
  - Retinal haemorrhage [Unknown]
  - Off label use [Unknown]
  - Drug ineffective [Unknown]
  - Visual acuity reduced [Unknown]
